FAERS Safety Report 19683324 (Version 1)
Quarter: 2021Q3

REPORT INFORMATION
  Report Type: Spontaneous
  Country: US (occurrence: US)
  Receive Date: 20210811
  Receipt Date: 20210811
  Transmission Date: 20211014
  Serious: No
  Sender: FDA-Public Use
  Company Number: US-CHIESI-2020CHF03719

PATIENT

DRUGS (2)
  1. KENGREAL [Suspect]
     Active Substance: CANGRELOR
     Indication: VERTEBRAL ARTERY ANEURYSM
     Dosage: UNK
  2. KENGREAL [Suspect]
     Active Substance: CANGRELOR
     Indication: OFF LABEL USE

REACTIONS (1)
  - Off label use [Unknown]
